FAERS Safety Report 4843989-9 (Version None)
Quarter: 2005Q4

REPORT INFORMATION
  Report Type: 
  Country: None (occurrence: None)
  Receive Date: 20051202
  Receipt Date: 20050506
  Transmission Date: 20060501
  Serious: No
  Sender: FDA-Public Use
  Company Number: US-GLAXOSMITHKLINE-A0557528A

PATIENT
  Age: 14 Year
  Sex: Male

DRUGS (1)
  1. AUGMENTIN XR [Suspect]
     Indication: SINUSITIS
     Dosage: 1000MG UNKNOWN
     Route: 048

REACTIONS (2)
  - DIARRHOEA [None]
  - VOMITING [None]
